FAERS Safety Report 8333051-5 (Version None)
Quarter: 2012Q2

REPORT INFORMATION
  Report Type: 
  Country: None (occurrence: None)
  Receive Date: 20120503
  Receipt Date: 20120427
  Transmission Date: 20120825
  Serious: Yes (Hospitalization, Other)
  Sender: FDA-Public Use
  Company Number: PHHY2012BR036404

PATIENT
  Age: 68 Year
  Sex: Female
  Weight: 45 kg

DRUGS (2)
  1. FORMOTEROL FUMARATE [Suspect]
     Dosage: CAPSULE OF EACH TREATMENT 2 TIMES DAILY (IN THE MORNING AND AT NIGHT)
  2. FORMOTEROL FUMARATE [Suspect]
     Indication: ASTHMA
     Dosage: CAPSULES OF THE TREATMENT, 1 IN THE MORNING AND 2 CAPSULES OF THE TREATMENT AT NIGHT.

REACTIONS (5)
  - CEREBRAL ISCHAEMIA [None]
  - ASTHMA [None]
  - RESPIRATORY ARREST [None]
  - WRONG TECHNIQUE IN DRUG USAGE PROCESS [None]
  - SYNCOPE [None]
